FAERS Safety Report 10144317 (Version 1)
Quarter: 2014Q2

REPORT INFORMATION
  Report Type: Spontaneous
  Country: GB (occurrence: GB)
  Receive Date: 20140430
  Receipt Date: 20140430
  Transmission Date: 20141212
  Serious: Yes (Hospitalization)
  Sender: FDA-Public Use
  Company Number: GB-BRISTOL-MYERS SQUIBB COMPANY-20674776

PATIENT
  Sex: Male
  Weight: 129 kg

DRUGS (2)
  1. METFORMIN HCL [Suspect]
     Indication: TYPE 2 DIABETES MELLITUS
  2. VICTOZA [Suspect]
     Dosage: DOSE INCREASED:1.2MG MAR12
     Dates: start: 20120303, end: 20140328

REACTIONS (5)
  - Cardiac disorder [Unknown]
  - Pneumonia [Unknown]
  - Blood glucose increased [Unknown]
  - Hypoglycaemia [Unknown]
  - Alanine aminotransferase increased [Unknown]
